FAERS Safety Report 7557925-8 (Version None)
Quarter: 2011Q2

REPORT INFORMATION
  Report Type: 
  Country: None (occurrence: None)
  Receive Date: 20110620
  Receipt Date: 20110609
  Transmission Date: 20111010
  Serious: Yes (Hospitalization)
  Sender: FDA-Public Use
  Company Number: B0717168A

PATIENT
  Sex: Male
  Weight: 108 kg

DRUGS (7)
  1. CELSENTRI [Suspect]
     Indication: HIV INFECTION
     Dosage: 300MG PER DAY
     Route: 048
     Dates: start: 20110209
  2. INTERLEUKIN [Suspect]
     Indication: HIV INFECTION
     Route: 058
     Dates: start: 20110405, end: 20110419
  3. PREZISTA [Concomitant]
     Dosage: 800MG PER DAY
     Route: 048
     Dates: start: 20070928
  4. ISENTRESS [Suspect]
     Indication: HIV INFECTION
     Dosage: 800MG PER DAY
     Route: 048
     Dates: start: 20110209
  5. ABACAVIR SULFATE AND LAMIVUDINE [Concomitant]
     Indication: HIV INFECTION
     Dosage: 1TAB PER DAY
     Dates: start: 20050928
  6. ASPEGIC 325 [Concomitant]
     Dosage: 100MG PER DAY
     Dates: start: 20090101
  7. NORVIR [Concomitant]
     Indication: HIV INFECTION
     Dosage: 100MG PER DAY
     Route: 048
     Dates: start: 20070928

REACTIONS (5)
  - ASTHENIA [None]
  - NAUSEA [None]
  - DEEP VEIN THROMBOSIS [None]
  - OEDEMA PERIPHERAL [None]
  - PAIN IN EXTREMITY [None]
